FAERS Safety Report 20354364 (Version 1)
Quarter: 2022Q1

REPORT INFORMATION
  Report Type: Other
  Country: CA (occurrence: None)
  Receive Date: 20220120
  Receipt Date: 20220120
  Transmission Date: 20220423
  Serious: Yes (Hospitalization)
  Sender: FDA-Public Use
  Company Number: CA-ROCHE-3002758

PATIENT
  Sex: Female

DRUGS (8)
  1. RITUXAN [Suspect]
     Active Substance: RITUXIMAB
     Indication: Rheumatoid arthritis
     Dosage: MOREDOSAGEINFO IS PIRS NOT RECEIVED TO CONFIRM DOSE
     Route: 041
     Dates: start: 20180420, end: 20181030
  2. RITUXAN [Suspect]
     Active Substance: RITUXIMAB
     Dosage: DRUG DOSE FIRST ADMINISTERED IS 1000 MG MILLIGRAM(S)?MOREDOSAGEINFO IS DAY 1,15
     Route: 041
     Dates: start: 20190717, end: 202201
  3. FOLIC ACID [Concomitant]
     Active Substance: FOLIC ACID
  4. PLAQUENIL [Concomitant]
     Active Substance: HYDROXYCHLOROQUINE SULFATE
  5. ACETAMINOPHEN [Concomitant]
     Active Substance: ACETAMINOPHEN
     Indication: Premedication
  6. DIPHENHYDRAMINE HYDROCHLORIDE [Concomitant]
     Active Substance: DIPHENHYDRAMINE HYDROCHLORIDE
     Indication: Premedication
  7. METHOTREXATE [Concomitant]
     Active Substance: METHOTREXATE
  8. METHYLPREDNISOLONE [Concomitant]
     Active Substance: METHYLPREDNISOLONE
     Indication: Premedication

REACTIONS (1)
  - COVID-19 [Unknown]
